FAERS Safety Report 6098834-3 (Version None)
Quarter: 2009Q1

REPORT INFORMATION
  Report Type: 
  Country: None (occurrence: None)
  Receive Date: 20090302
  Receipt Date: 20090223
  Transmission Date: 20090719
  Serious: Yes (Congenital Anomaly)
  Sender: FDA-Public Use
  Company Number: A0722166A

PATIENT
  Sex: Female

DRUGS (2)
  1. PAXIL [Suspect]
     Indication: ANXIETY
     Dosage: 20MG PER DAY
     Dates: start: 20010501, end: 20020901
  2. VITAMIN TAB [Concomitant]

REACTIONS (7)
  - BICUSPID AORTIC VALVE [None]
  - CARDIAC MURMUR [None]
  - CONGENITAL SPINAL FUSION [None]
  - DRUG EXPOSURE DURING PREGNANCY [None]
  - MATERNAL DRUGS AFFECTING FOETUS [None]
  - PATENT DUCTUS ARTERIOSUS [None]
  - UMBILICAL CORD AROUND NECK [None]
